FAERS Safety Report 10101621 (Version 1)
Quarter: 2014Q2

REPORT INFORMATION
  Report Type: Spontaneous
  Country: NL (occurrence: None)
  Receive Date: 20140422
  Receipt Date: 20140422
  Transmission Date: 20141212
  Serious: Yes (Other)
  Sender: FDA-Public Use
  Company Number: 2014P1003240

PATIENT
  Sex: 0

DRUGS (1)
  1. RISPERIDONE [Suspect]

REACTIONS (3)
  - Hyponatraemia [None]
  - Brain oedema [None]
  - Blood antidiuretic hormone increased [None]
